FAERS Safety Report 14237498 (Version 1)
Quarter: 2017Q4

REPORT INFORMATION
  Report Type: Spontaneous
  Country: US (occurrence: US)
  Receive Date: 20171129
  Receipt Date: 20171129
  Transmission Date: 20180321
  Serious: No
  Sender: FDA-Public Use
  Company Number: US-AMNEAL PHARMACEUTICALS-2017AMN00818

PATIENT
  Sex: Male
  Weight: 90.7 kg

DRUGS (13)
  1. LORATADINE. [Concomitant]
     Active Substance: LORATADINE
  2. CLOBETASOL SOLUTION [Concomitant]
  3. NITROGLYCERIN. [Concomitant]
     Active Substance: NITROGLYCERIN
  4. ALBURON HFA ORAL [Concomitant]
  5. IPRATROPIUM BROMIDE. [Concomitant]
     Active Substance: IPRATROPIUM BROMIDE
  6. ASPIRIN. [Concomitant]
     Active Substance: ASPIRIN
     Dosage: 162 MG, UNK
  7. EPINEPHRINE. [Concomitant]
     Active Substance: EPINEPHRINE
  8. RANITIDINE. [Suspect]
     Active Substance: RANITIDINE
     Indication: GASTROOESOPHAGEAL REFLUX DISEASE
  9. ALBUTEROL. [Concomitant]
     Active Substance: ALBUTEROL
     Dosage: UNK
  10. KETOCONAZOLE. [Concomitant]
     Active Substance: KETOCONAZOLE
  11. METOPROLOL. [Concomitant]
     Active Substance: METOPROLOL
  12. FLUTICASONE. [Concomitant]
     Active Substance: FLUTICASONE
  13. CROLAMINE SATURATE [Concomitant]

REACTIONS (2)
  - Chromaturia [Not Recovered/Not Resolved]
  - Proteinuria [Not Recovered/Not Resolved]
